FAERS Safety Report 4745386-3 (Version None)
Quarter: 2005Q3

REPORT INFORMATION
  Report Type: 
  Country: None (occurrence: None)
  Receive Date: 20050815
  Receipt Date: 20050210
  Transmission Date: 20060218
  Serious: Yes (Death, Life-Threatening, Hospitalization, Other)
  Sender: FDA-Public Use
  Company Number: BR-ABBOTT-05P-020-0290386-00

PATIENT
  Sex: Female
  Weight: 42 kg

DRUGS (24)
  1. KALETRA [Suspect]
     Indication: HIV INFECTION
     Route: 048
     Dates: start: 20041020, end: 20050103
  2. KALETRA [Suspect]
     Dates: start: 20031029, end: 20041003
  3. CAPRAVIRINE [Suspect]
     Indication: HIV INFECTION
     Route: 048
     Dates: start: 20041004, end: 20050103
  4. LAMIVUDINE [Suspect]
     Indication: HIV INFECTION
     Route: 048
     Dates: start: 20041004, end: 20050103
  5. LAMIVUDINE [Suspect]
     Dates: start: 20031029, end: 20041003
  6. TENOFOVIR [Suspect]
     Indication: HIV INFECTION
     Route: 048
     Dates: start: 20041004, end: 20050103
  7. TENOFOVIR [Suspect]
     Dates: start: 20031029, end: 20041003
  8. DIDANOSINE [Suspect]
     Indication: HIV INFECTION
     Route: 048
     Dates: start: 20041004, end: 20050103
  9. THEOPHYLLINE [Concomitant]
     Indication: DRUG USE FOR UNKNOWN INDICATION
     Route: 048
     Dates: start: 20031119, end: 20050103
  10. VITAMINS [Concomitant]
     Indication: DRUG USE FOR UNKNOWN INDICATION
     Route: 048
     Dates: start: 20040127, end: 20050103
  11. METFORMIN [Concomitant]
     Indication: DRUG USE FOR UNKNOWN INDICATION
     Route: 048
     Dates: start: 20041129
  12. LOPERAMIDE [Concomitant]
     Indication: DRUG USE FOR UNKNOWN INDICATION
     Route: 048
     Dates: start: 20040112, end: 20050103
  13. BACTRIM [Concomitant]
     Indication: PNEUMOCYSTIS JIROVECI PNEUMONIA
     Route: 048
     Dates: start: 20050103, end: 20050103
  14. BACTRIM [Concomitant]
     Indication: INFECTION PROPHYLAXIS
     Dates: start: 19990101, end: 20050111
  15. PREDNISONE [Concomitant]
     Indication: DRUG USE FOR UNKNOWN INDICATION
     Route: 048
     Dates: start: 20040419
  16. DAPSONE [Concomitant]
     Indication: DRUG USE FOR UNKNOWN INDICATION
     Dates: start: 20050112, end: 20050120
  17. PIVIMETAMINE [Concomitant]
     Indication: DRUG USE FOR UNKNOWN INDICATION
     Dates: start: 20050113
  18. HYDROCHLOROTHIAZIDE [Concomitant]
     Indication: DRUG USE FOR UNKNOWN INDICATION
     Dates: start: 20050108, end: 20050108
  19. DIMETICONE [Concomitant]
     Indication: DRUG USE FOR UNKNOWN INDICATION
     Dates: start: 20050109, end: 20050111
  20. FOLINIC ACID [Concomitant]
     Indication: DRUG USE FOR UNKNOWN INDICATION
     Dates: start: 20050112, end: 20050119
  21. CAPTOPRIL [Concomitant]
     Indication: DRUG USE FOR UNKNOWN INDICATION
     Dates: start: 20050113, end: 20050116
  22. ALBUTEROL SULFATE HFA [Concomitant]
     Indication: DRUG USE FOR UNKNOWN INDICATION
     Dates: start: 20040501, end: 20050103
  23. BUDESONIDE INHALER [Concomitant]
     Indication: DRUG USE FOR UNKNOWN INDICATION
     Dates: start: 20030101, end: 20050103
  24. HEPARIN [Concomitant]
     Indication: DRUG USE FOR UNKNOWN INDICATION
     Dates: start: 20050111, end: 20050113

REACTIONS (19)
  - ABDOMINAL PAIN [None]
  - ANAEMIA [None]
  - APHASIA [None]
  - ASCITES [None]
  - ASTHENIA [None]
  - CATHETER SEPSIS [None]
  - DECREASED APPETITE [None]
  - DIABETES MELLITUS [None]
  - DISORIENTATION [None]
  - HAEMATURIA [None]
  - HAEMODIALYSIS [None]
  - JAUNDICE [None]
  - METABOLIC ACIDOSIS [None]
  - MONOPARESIS [None]
  - OEDEMA PERIPHERAL [None]
  - PYREXIA [None]
  - RENAL FAILURE ACUTE [None]
  - RHONCHI [None]
  - WEIGHT DECREASED [None]
